FAERS Safety Report 23740983 (Version 1)
Quarter: 2024Q2

REPORT INFORMATION
  Report Type: Spontaneous
  Country: IT (occurrence: IT)
  Receive Date: 20240415
  Receipt Date: 20240415
  Transmission Date: 20240715
  Serious: Yes (Other)
  Sender: FDA-Public Use
  Company Number: None

PATIENT
  Age: 36 Year
  Sex: Female

DRUGS (1)
  1. EPIRUBICIN [Suspect]
     Active Substance: EPIRUBICIN
     Indication: Breast cancer
     Dosage: START OF THERAPY 10/17/2023 - THERAPY EVERY 21 DAYS - 1ST CYCLE ON 10/17/2023 4TH CYCLE ON 12/19/...
     Route: 042
     Dates: start: 20231017, end: 20231219

REACTIONS (8)
  - Leukopenia [Recovering/Resolving]
  - Diarrhoea [Recovered/Resolved]
  - Alopecia [Recovering/Resolving]
  - Mucosal inflammation [Recovering/Resolving]
  - Neutropenia [Recovering/Resolving]
  - Alanine aminotransferase increased [Not Recovered/Not Resolved]
  - Nausea [Recovered/Resolved]
  - Vomiting [Recovered/Resolved]

NARRATIVE: CASE EVENT DATE: 20231101
